FAERS Safety Report 10201886 (Version 3)
Quarter: 2014Q2

REPORT INFORMATION
  Report Type: Spontaneous
  Country: JP (occurrence: JP)
  Receive Date: 20140528
  Receipt Date: 20140610
  Transmission Date: 20141212
  Serious: Yes (Death)
  Sender: FDA-Public Use
  Company Number: PHHY2013JP152789

PATIENT
  Age: 81 Year
  Sex: Female

DRUGS (3)
  1. ULTIBRO BREEZHALER [Suspect]
     Indication: CHRONIC OBSTRUCTIVE PULMONARY DISEASE
     Dosage: 1 DF, QD
     Route: 055
     Dates: start: 20131217, end: 20140114
  2. HALCION [Concomitant]
     Dosage: 0.25 MG, UNK
     Route: 048
  3. OMEPRAL [Concomitant]
     Dosage: 10 MG, UNK
     Route: 048

REACTIONS (2)
  - Death [Fatal]
  - Abdominal discomfort [Unknown]
